FAERS Safety Report 16223343 (Version 4)
Quarter: 2019Q2

REPORT INFORMATION
  Report Type: Spontaneous
  Country: US (occurrence: US)
  Receive Date: 20190422
  Receipt Date: 20190530
  Transmission Date: 20190711
  Serious: Yes (Hospitalization)
  Sender: FDA-Public Use
  Company Number: US-STRONGBRIDGE BIOPHARMA-2019-STR-000091

PATIENT
  Age: 59 Year
  Sex: Female

DRUGS (1)
  1. KEVEYIS [Suspect]
     Active Substance: DICHLORPHENAMIDE
     Indication: FAMILIAL PERIODIC PARALYSIS
     Dosage: 50 MG, BID
     Route: 048
     Dates: start: 20170428

REACTIONS (16)
  - Insomnia [Recovered/Resolved]
  - Dyspnoea [Unknown]
  - Dysarthria [Recovered/Resolved]
  - Rotator cuff syndrome [Recovering/Resolving]
  - Diarrhoea [Unknown]
  - Back injury [Recovering/Resolving]
  - Insomnia [Unknown]
  - Blood sodium decreased [Unknown]
  - Fall [Recovering/Resolving]
  - Orthostatic hypotension [Recovered/Resolved]
  - Fatigue [Unknown]
  - Blood potassium decreased [Recovering/Resolving]
  - Blood potassium decreased [Recovered/Resolved]
  - Nervousness [Unknown]
  - Concussion [Unknown]
  - Hypotension [Unknown]

NARRATIVE: CASE EVENT DATE: 2019
